FAERS Safety Report 7537058-7 (Version None)
Quarter: 2011Q2

REPORT INFORMATION
  Report Type: 
  Country: None (occurrence: None)
  Receive Date: 20110609
  Receipt Date: 20110527
  Transmission Date: 20111010
  Serious: Yes (Hospitalization, Other)
  Sender: FDA-Public Use
  Company Number: PHHY2011BR46522

PATIENT
  Sex: Male

DRUGS (15)
  1. DIOVAN [Suspect]
     Indication: HYPERTENSION
     Dosage: 160 MG VALS, 1 DF, DAILY
     Route: 048
  2. FINASTERIDE [Concomitant]
     Indication: PROSTATOMEGALY
     Dosage: 1 DF, DAILY
     Route: 048
  3. INSULIN [Concomitant]
     Indication: DIABETES MELLITUS
  4. ZELMAC [Concomitant]
     Indication: ABNORMAL FAECES
     Dosage: 2 DF, DAILY
     Route: 048
  5. MELLARIL [Concomitant]
     Indication: DEPRESSION
     Dosage: 1 DF, DAILY
     Route: 048
  6. CLONAZEPAM [Concomitant]
     Indication: DEPRESSION
     Dosage: 1 DF, DAILY
     Route: 048
  7. BETAHISTINE HYDROCHLORIDE [Concomitant]
     Indication: LABYRINTHITIS
  8. SALBUTAMOL SULFATE [Concomitant]
     Indication: BLOOD POTASSIUM ABNORMAL
     Dosage: 1 DF, BID
     Route: 048
  9. LASIX [Concomitant]
     Indication: POLYURIA
     Dosage: 1 DF, DAILY
     Route: 048
  10. ATENOLOL [Concomitant]
     Indication: HYPERTENSION
     Dosage: 1 DF, DAILY
     Route: 048
  11. DUOMO [Concomitant]
     Indication: PROSTATOMEGALY
     Dosage: 2 MG, 1 DF, DAILY
     Route: 048
  12. NEXIUM [Concomitant]
     Indication: ABDOMINAL DISCOMFORT
     Dosage: 20 MG, 1 DF, DAILY
     Route: 048
  13. MELILOT [Concomitant]
     Indication: CARDIOVASCULAR DISORDER
     Dosage: 1 DF, EVERY 2 DAYS
     Route: 048
  14. SIMVASTATIN [Concomitant]
     Indication: BLOOD CHOLESTEROL INCREASED
     Dosage: 20 MG, 1 DF, DAILY
     Route: 048
  15. PAROXETINE HCL [Concomitant]
     Indication: DEPRESSION
     Dosage: 1 DF, DAILY
     Route: 048

REACTIONS (2)
  - BLOOD GLUCOSE INCREASED [None]
  - HYPOTENSION [None]
